FAERS Safety Report 8953115 (Version 1)
Quarter: 2012Q4

REPORT INFORMATION
  Report Type: 
  Country: US (occurrence: US)
  Receive Date: 20121206
  Receipt Date: 20121206
  Transmission Date: 20130627
  Serious: Yes (Hospitalization)
  Sender: FDA-Public Use
  Company Number: US-AMGEN-USASP2012077157

PATIENT
  Age: 70 Year
  Sex: Male

DRUGS (4)
  1. XGEVA [Suspect]
     Indication: LUNG CANCER METASTATIC
     Dosage: UNK
  2. AVASTIN                            /01555201/ [Concomitant]
  3. VITAMIN D                          /00318501/ [Concomitant]
     Dosage: UNK UNK, qd
  4. CALCIUM [Concomitant]
     Dosage: UNK UNK, qd

REACTIONS (2)
  - Blood calcium decreased [Recovered/Resolved]
  - Blood magnesium decreased [Recovered/Resolved]
